FAERS Safety Report 17031122 (Version 3)
Quarter: 2022Q1

REPORT INFORMATION
  Report Type: Report from Study
  Country: FR (occurrence: FR)
  Receive Date: 20191114
  Receipt Date: 20220208
  Transmission Date: 20220424
  Serious: Yes (Other)
  Sender: FDA-Public Use
  Company Number: FR-JAZZ-2019-FR-014154

PATIENT
  Age: 28 Year
  Sex: Male

DRUGS (10)
  1. TACROLIMUS [Suspect]
     Active Substance: TACROLIMUS
     Indication: Graft versus host disease
     Route: 042
     Dates: start: 20180612, end: 20180614
  2. DEFITELIO [Suspect]
     Active Substance: DEFIBROTIDE SODIUM
     Indication: Prophylaxis
     Route: 042
     Dates: start: 20180509, end: 20180617
  3. DEFITELIO [Suspect]
     Active Substance: DEFIBROTIDE SODIUM
     Indication: Venoocclusive disease
  4. CYCLOPHOSPHAMIDE [Concomitant]
     Active Substance: CYCLOPHOSPHAMIDE
     Indication: Bone marrow conditioning regimen
     Dosage: UNK UNK, UNKNOWN FREQ.
     Route: 065
  5. METHOTREXATE [Concomitant]
     Active Substance: METHOTREXATE
     Indication: Prophylaxis against graft versus host disease
     Dosage: UNK UNK, UNKNOWN FREQ.
     Route: 065
  6. CYTARABINE [Concomitant]
     Active Substance: CYTARABINE
     Indication: Bone marrow conditioning regimen
     Dosage: UNK UNK, UNKNOWN FREQ.
     Route: 065
  7. URSODIOL [Concomitant]
     Active Substance: URSODIOL
     Indication: Prophylaxis
     Dosage: UNK UNK, UNKNOWN FREQ.
     Route: 065
  8. BUSULFAN [Concomitant]
     Active Substance: BUSULFAN
     Indication: Bone marrow conditioning regimen
     Dosage: UNK UNK, UNKNOWN FREQ.
     Route: 065
  9. GEMTUZUMAB OZOGAMICIN [Concomitant]
     Active Substance: GEMTUZUMAB OZOGAMICIN
     Indication: Product used for unknown indication
     Dosage: UNK UNK, UNKNOWN FREQ.
     Route: 065
  10. ETOPOSIDE [Concomitant]
     Active Substance: ETOPOSIDE
     Indication: Bone marrow conditioning regimen
     Dosage: UNK UNK, UNKNOWN FREQ.
     Route: 065

REACTIONS (4)
  - Embolism [Recovered/Resolved]
  - Chronic graft versus host disease [Unknown]
  - Thrombotic microangiopathy [Recovered/Resolved]
  - Acute myeloid leukaemia recurrent [Unknown]

NARRATIVE: CASE EVENT DATE: 20180614
